FAERS Safety Report 6584160-2 (Version None)
Quarter: 2010Q1

REPORT INFORMATION
  Report Type: 
  Country: None (occurrence: None)
  Receive Date: 20100213
  Receipt Date: 20100213
  Transmission Date: 20100710
  Serious: No
  Sender: FDA-Public Use
  Company Number: None

PATIENT
  Age: 84 Year
  Sex: Male
  Weight: 93.4 kg

DRUGS (1)
  1. GENTAMICIN [Suspect]
     Indication: ENDOCARDITIS
     Dosage: 60MG EVERY 12 HOURS IV
     Route: 042
     Dates: start: 20100105, end: 20100124

REACTIONS (2)
  - FEELING ABNORMAL [None]
  - VERTIGO [None]
